FAERS Safety Report 7091093-4 (Version None)
Quarter: 2010Q4

REPORT INFORMATION
  Report Type: 
  Country: None (occurrence: None)
  Receive Date: 20101109
  Receipt Date: 20101102
  Transmission Date: 20110411
  Serious: Yes (Other)
  Sender: FDA-Public Use
  Company Number: PHHY2010DE74066

PATIENT
  Sex: Female

DRUGS (1)
  1. EXTAVIA [Suspect]
     Indication: MULTIPLE SCLEROSIS
     Dosage: 250 UG, QOD
     Route: 058
     Dates: start: 20090501

REACTIONS (4)
  - C-REACTIVE PROTEIN INCREASED [None]
  - CYSTITIS [None]
  - PYREXIA [None]
  - VULVOVAGINAL MYCOTIC INFECTION [None]
